FAERS Safety Report 5924217-X (Version None)
Quarter: 2008Q4

REPORT INFORMATION
  Report Type: 
  Country: None (occurrence: None)
  Receive Date: 20081015
  Receipt Date: 20081010
  Transmission Date: 20090506
  Serious: Yes (Hospitalization, Other)
  Sender: FDA-Public Use
  Company Number: 6046366

PATIENT
  Age: 75 Year
  Sex: Male

DRUGS (5)
  1. BISOPROLOL FUMARATE [Suspect]
     Indication: CARDIAC FAILURE CONGESTIVE
     Dosage: ORAL
     Route: 048
     Dates: start: 20080601, end: 20080701
  2. AMLODIPINE [Concomitant]
  3. BENDROFLUAZIDE (BENDROFLUMETHIAZIDE) [Concomitant]
  4. DIGOXIN [Concomitant]
  5. WARFARIN TABLETS (WARFARIN SODIUM) [Concomitant]

REACTIONS (6)
  - BLOOD ALBUMIN DECREASED [None]
  - BLOOD CALCIUM DECREASED [None]
  - DERMATITIS EXFOLIATIVE [None]
  - HYPONATRAEMIA [None]
  - LICHENOID KERATOSIS [None]
  - OEDEMA [None]
